FAERS Safety Report 18084199 (Version 1)
Quarter: 2020Q3

REPORT INFORMATION
  Report Type: Other
  Country: GB (occurrence: GB)
  Receive Date: 20200729
  Receipt Date: 20200729
  Transmission Date: 20201103
  Serious: Yes (Other)
  Sender: FDA-Public Use
  Company Number: GB-LUPIN PHARMACEUTICALS INC.-2019-07140

PATIENT
  Age: 30 Year
  Sex: Male
  Weight: 42 kg

DRUGS (1)
  1. LEVETIRACETAM TABLETS [Suspect]
     Active Substance: LEVETIRACETAM
     Indication: PRODUCT USED FOR UNKNOWN INDICATION
     Dosage: 500 MILLIGRAM, QD, IDEALLY GRADUALLY INCREASING
     Route: 065
     Dates: start: 20190130

REACTIONS (1)
  - Anaphylactic reaction [Recovered/Resolved]
